FAERS Safety Report 21751310 (Version 1)
Quarter: 2022Q4

REPORT INFORMATION
  Report Type: Spontaneous
  Country: ES (occurrence: ES)
  Receive Date: 20221220
  Receipt Date: 20221220
  Transmission Date: 20230113
  Serious: Yes (Life-Threatening, Hospitalization, Other)
  Sender: FDA-Public Use
  Company Number: ES-AEMPS-1293985

PATIENT
  Age: 62 Year
  Sex: Female

DRUGS (22)
  1. ATORVASTATIN [Suspect]
     Active Substance: ATORVASTATIN
     Indication: Product used for unknown indication
     Dosage: UNK
     Route: 065
  2. ZOLPIDEM [Suspect]
     Active Substance: ZOLPIDEM TARTRATE
     Indication: Product used for unknown indication
     Dosage: UNK
     Route: 048
     Dates: end: 20221124
  3. AMIODARONE HYDROCHLORIDE [Suspect]
     Active Substance: AMIODARONE HYDROCHLORIDE
     Indication: Product used for unknown indication
     Dosage: UNK
     Route: 065
  4. VENLAFAXINE HYDROCHLORIDE [Suspect]
     Active Substance: VENLAFAXINE HYDROCHLORIDE
     Indication: Depression
     Dosage: UNK
     Route: 048
     Dates: start: 20221026, end: 20221124
  5. FUROSEMIDE [Concomitant]
     Active Substance: FUROSEMIDE
     Indication: Product used for unknown indication
     Dosage: UNK
     Route: 065
  6. PFIZER-BIONTECH COVID-19 VACCINE, BIVALENT [Suspect]
     Active Substance: BNT162B2 OMICRON (BA.4/BA.5)\TOZINAMERAN
     Indication: COVID-19 immunisation
     Dosage: 4? DOSIS
     Route: 065
     Dates: start: 20221103, end: 20221103
  7. VAXZEVRIA SUSPENSION INYECTABLE 10 viales multidosis (10 dosis por via [Concomitant]
     Indication: COVID-19 immunisation
     Dosage: 1? DOSIS
     Route: 065
     Dates: start: 20210514, end: 20210514
  8. VAXZEVRIA SUSPENSION INYECTABLE 10 viales multidosis (10 dosis por via [Concomitant]
     Dosage: 2? DOSIS
     Route: 065
     Dates: start: 20210730, end: 20210730
  9. TERBASMIN TURBUHALER 500 microgramos/inhalacion POLVO PARA INHALACION [Concomitant]
     Indication: Product used for unknown indication
     Dosage: UNK
     Route: 065
  10. Lorazepam 5 mg comprimido [Concomitant]
     Indication: Product used for unknown indication
     Dosage: UNK
     Route: 065
  11. ALDACTONE 25 mg COMPRIMIDOS RECUBIERTOS CON PELICULA [Concomitant]
     Indication: Product used for unknown indication
     Dosage: UNK
     Route: 065
  12. COMIRNATY 30 MICROGRAMOS/DOSIS CONCENTRADO PARA DISPERSI?N INYECTABLE, [Concomitant]
     Indication: COVID-19 immunisation
     Dosage: 3? DOSIS
     Route: 065
     Dates: start: 20211229, end: 20211229
  13. ELIQUIS [Concomitant]
     Active Substance: APIXABAN
     Indication: Product used for unknown indication
     Dosage: UNK
     Route: 065
  14. ALPRAZOLAM [Concomitant]
     Active Substance: ALPRAZOLAM
     Indication: Product used for unknown indication
     Dosage: UNK
     Route: 065
  15. Esomeprazol 20 mg casula [Concomitant]
     Indication: Product used for unknown indication
     Dosage: UNK
     Route: 065
  16. XUMADOL 1 g COMPRIMIDOS EFG [Concomitant]
     Indication: Product used for unknown indication
     Dosage: UNK
     Route: 065
  17. FLUCELVAX TETRA [Suspect]
     Active Substance: INFLUENZA VIRUS VACCINE
     Indication: Product used for unknown indication
     Route: 065
     Dates: start: 20221103, end: 20221103
  18. HIBOR 3.500 UI ANTI XA/0,2 ml SOLUCI?N INYECTABLE EN JERINGAS PRECARGA [Concomitant]
     Indication: Product used for unknown indication
     Dosage: UNK
     Route: 065
  19. FERBISOL 100 mg CAPSULAS GASTRORRESISTENTES [Concomitant]
     Indication: Product used for unknown indication
     Dosage: UNK
     Route: 065
  20. RIVOTRIL [Concomitant]
     Active Substance: CLONAZEPAM
     Indication: Product used for unknown indication
     Dosage: UNK
     Route: 065
  21. BISOPROLOL [Concomitant]
     Active Substance: BISOPROLOL
     Indication: Product used for unknown indication
     Dosage: UNK
     Route: 065
  22. JARDIANCE 10 MG COMPRIMIDOS RECUBIERTOS CON PELICULA [Concomitant]
     Indication: Product used for unknown indication
     Dosage: UNK
     Route: 065

REACTIONS (1)
  - Hepatitis fulminant [Recovering/Resolving]

NARRATIVE: CASE EVENT DATE: 20221115
